FAERS Safety Report 8924131 (Version 1)
Quarter: 2012Q4

REPORT INFORMATION
  Report Type: Spontaneous
  Country: US (occurrence: None)
  Receive Date: 20121121
  Receipt Date: 20121121
  Transmission Date: 20130627
  Serious: No
  Sender: FDA-Public Use
  Company Number: None

PATIENT
  Sex: Male
  Weight: 103.3 kg

DRUGS (7)
  1. CYTARABINE [Suspect]
  2. DAUNORUBICIN [Suspect]
  3. ETOPOSIDE [Suspect]
  4. GEMTUZUMAB OZOGAMICIN [Suspect]
  5. L-ASPARAGINASE [Suspect]
  6. MITOXANTRONE HYDROCHLORIDE [Suspect]
  7. VORICONAZOLE [Concomitant]

REACTIONS (1)
  - Bronchopulmonary aspergillosis [None]
